FAERS Safety Report 21951347 (Version 2)
Quarter: 2023Q4

REPORT INFORMATION
  Report Type: Spontaneous
  Country: US (occurrence: US)
  Receive Date: 20230203
  Receipt Date: 20231011
  Transmission Date: 20240110
  Serious: No
  Sender: FDA-Public Use
  Company Number: US-SA-SAC20230202000297

PATIENT
  Sex: Male

DRUGS (6)
  1. DUPIXENT [Suspect]
     Active Substance: DUPILUMAB
     Indication: Dermatitis atopic
     Dosage: 300 MG, QOW
     Route: 058
     Dates: start: 20220513
  2. FINASTERIDE [Concomitant]
     Active Substance: FINASTERIDE
  3. MINOXIDIL [Concomitant]
     Active Substance: MINOXIDIL
     Dosage: UNK
  4. TACROLIMUS [Concomitant]
     Active Substance: TACROLIMUS
     Dosage: UNK
  5. METRONIDAZOLE [Concomitant]
     Active Substance: METRONIDAZOLE
  6. METRONIDAZOLE [METRONIDAZOLE SODIUM] [Concomitant]

REACTIONS (3)
  - Dermatitis atopic [Recovered/Resolved]
  - Drug ineffective [Unknown]
  - Product dose omission in error [Unknown]

NARRATIVE: CASE EVENT DATE: 20221201
